FAERS Safety Report 19747536 (Version 1)
Quarter: 2021Q3

REPORT INFORMATION
  Report Type: Spontaneous
  Country: DE (occurrence: DE)
  Receive Date: 20210826
  Receipt Date: 20210826
  Transmission Date: 20211014
  Serious: Yes (Death, Hospitalization, Other)
  Sender: FDA-Public Use
  Company Number: DE-EMD SERONO-E2B_90084870

PATIENT
  Age: 85 Year
  Sex: Male
  Weight: 60 kg

DRUGS (8)
  1. DELIX PLUS [Suspect]
     Active Substance: HYDROCHLOROTHIAZIDE\RAMIPRIL
     Indication: HYPERTENSION
     Dosage: 5 MG/ 12.5 MG
     Route: 048
     Dates: start: 20160222, end: 20210220
  2. DIGITOXIN [Concomitant]
     Active Substance: DIGITOXIN
     Indication: HYPERTENSION
     Dosage: DAILY DOSE: 0.07 MG MILLGRAM(S) EVERY DAYS
     Route: 048
     Dates: start: 20160120
  3. NITRENDIPINE [Concomitant]
     Active Substance: NITRENDIPINE
     Indication: HYPERTENSION
     Dosage: DAILY DOSE: 20 MG MILLGRAM(S) EVERY DAYS
     Route: 048
     Dates: start: 20160120
  4. SIMVASTATIN. [Concomitant]
     Active Substance: SIMVASTATIN
     Indication: CORONARY ARTERY DISEASE
     Dosage: DAILY DOSE: 20 MG MILLGRAM(S) EVERY DAYS
     Route: 048
     Dates: start: 20160120
  5. APIXABAN [Concomitant]
     Active Substance: APIXABAN
     Indication: HYPERTENSION
     Dosage: DAILY DOSE: 5 MG MILLGRAM(S) EVERY DAYS 2 SEPARATED DOSES
     Route: 048
  6. METFORMIN [Suspect]
     Active Substance: METFORMIN HYDROCHLORIDE
     Indication: TYPE 2 DIABETES MELLITUS
     Dosage: DAILY DOSE: 2000 MG MILLGRAM(S) EVERY DAYS 2 SEPARATED DOSES
     Route: 048
     Dates: start: 20160120, end: 20210222
  7. VITAMIN B12 AMINO [Concomitant]
     Active Substance: CYANOCOBALAMIN
     Indication: VITAMIN B12 DEFICIENCY
     Dosage: DAILY DOSE: 1 MG MILLGRAM(S) EVERY MONTHS
     Route: 058
     Dates: start: 20160120
  8. METOPROLOL. [Concomitant]
     Active Substance: METOPROLOL
     Indication: ATRIAL FIBRILLATION
     Dosage: DAILY DOSE: 190 MG MILLGRAM(S) EVERY DAYS 2 SEPARATED DOSES
     Route: 048
     Dates: start: 20160120

REACTIONS (11)
  - Hypokalaemia [Fatal]
  - Acute kidney injury [Fatal]
  - Tongue biting [Fatal]
  - Lactic acidosis [Fatal]
  - Tremor [Fatal]
  - Confusional state [Fatal]
  - Haematoma [Fatal]
  - Dehydration [Fatal]
  - Epilepsy [Fatal]
  - Fall [Fatal]
  - Hyponatraemia [Fatal]

NARRATIVE: CASE EVENT DATE: 20210219
